FAERS Safety Report 17907734 (Version 1)
Quarter: 2020Q2

REPORT INFORMATION
  Report Type: Spontaneous
  Country: AT (occurrence: AT)
  Receive Date: 20200617
  Receipt Date: 20200617
  Transmission Date: 20200714
  Serious: Yes (Other)
  Sender: FDA-Public Use
  Company Number: AT-PFIZER INC-2020232273

PATIENT
  Age: 24 Year
  Sex: Male

DRUGS (5)
  1. COSENTYX [Suspect]
     Active Substance: SECUKINUMAB
     Dosage: 300 MG EVERY FOUR WEEKS
     Route: 065
     Dates: end: 2019
  2. COSENTYX [Suspect]
     Active Substance: SECUKINUMAB
     Indication: PSORIATIC ARTHROPATHY
     Dosage: 150 MG EVERY 4 WEEKS
     Route: 065
  3. METHOTREXATE SODIUM. [Suspect]
     Active Substance: METHOTREXATE SODIUM
     Indication: PSORIATIC ARTHROPATHY
     Dosage: UNK
     Route: 065
  4. COSENTYX [Suspect]
     Active Substance: SECUKINUMAB
     Dosage: 300 MG EVERY FOUR WEEKS
     Route: 065
  5. COSENTYX [Suspect]
     Active Substance: SECUKINUMAB
     Dosage: UNK

REACTIONS (9)
  - Enthesopathy [Recovered/Resolved]
  - Arthralgia [Recovered/Resolved]
  - Disease recurrence [Unknown]
  - Treatment noncompliance [Unknown]
  - Product dose omission [Unknown]
  - Psoriasis [Unknown]
  - Condition aggravated [Recovered/Resolved]
  - Psoriatic arthropathy [Recovered/Resolved]
  - Therapeutic product effect incomplete [Unknown]
